FAERS Safety Report 4429212-8 (Version None)
Quarter: 2004Q3

REPORT INFORMATION
  Report Type: 
  Country: None (occurrence: None)
  Receive Date: 20040819
  Receipt Date: 20040809
  Transmission Date: 20050211
  Serious: Yes (Death, Other)
  Sender: FDA-Public Use
  Company Number: NSADSS2002007769

PATIENT
  Sex: Female

DRUGS (11)
  1. REMICADE [Suspect]
     Route: 041
     Dates: start: 20000701
  2. REMICADE [Suspect]
     Indication: RHEUMATOID ARTHRITIS
     Route: 041
     Dates: start: 20000701
  3. CELEBREX [Concomitant]
     Indication: DRUG USE FOR UNKNOWN INDICATION
     Route: 065
  4. ARAVA [Concomitant]
     Indication: DRUG USE FOR UNKNOWN INDICATION
     Route: 065
  5. PREDNISONE [Concomitant]
     Indication: DRUG USE FOR UNKNOWN INDICATION
     Route: 065
  6. ZOCOR [Concomitant]
  7. PRILOSEC [Concomitant]
  8. GLUCOTROL [Concomitant]
  9. DURAGESIC [Concomitant]
     Route: 062
  10. CAPTOPRIL [Concomitant]
  11. METHOTREXATE [Concomitant]

REACTIONS (3)
  - CARDIAC FAILURE CONGESTIVE [None]
  - PNEUMOTHORAX SPONTANEOUS TENSION [None]
  - PULMONARY FIBROSIS [None]
